FAERS Safety Report 20028059 (Version 2)
Quarter: 2022Q1

REPORT INFORMATION
  Report Type: Report from Study
  Country: JP (occurrence: JP)
  Receive Date: 20211103
  Receipt Date: 20220113
  Transmission Date: 20220423
  Serious: Yes (Life-Threatening, Other)
  Sender: FDA-Public Use
  Company Number: JP-AUROBINDO-AUR-APL-2021-045676

PATIENT
  Age: 79 Year
  Sex: Male
  Weight: 51 kg

DRUGS (4)
  1. FOLOTYN [Suspect]
     Active Substance: PRALATREXATE
     Indication: Angioimmunoblastic T-cell lymphoma stage IV
     Dosage: 30 MILLIGRAM/SQ. METER
     Route: 042
     Dates: start: 20201208, end: 20201208
  2. FOLOTYN [Suspect]
     Active Substance: PRALATREXATE
     Dosage: UNK ((ADMINISTRATION ON 15DEC2020, 22DEC2020 AND 28DEC2020)
     Route: 042
     Dates: start: 20201215, end: 20201228
  3. FOLIC ACID [Concomitant]
     Active Substance: FOLIC ACID
     Indication: Prophylaxis
     Dosage: UNK
     Route: 065
     Dates: start: 20201130, end: 20210114
  4. VITAMIN B12 [Concomitant]
     Active Substance: CYANOCOBALAMIN
     Indication: Prophylaxis
     Dosage: UNK
     Route: 030
     Dates: start: 20201130, end: 20201130

REACTIONS (3)
  - Anaemia [Recovered/Resolved]
  - Platelet count decreased [Recovering/Resolving]
  - Disease progression [Unknown]

NARRATIVE: CASE EVENT DATE: 20201221
